FAERS Safety Report 8402123-9 (Version None)
Quarter: 2012Q2

REPORT INFORMATION
  Report Type: 
  Country: None (occurrence: None)
  Receive Date: 20120601
  Receipt Date: 20110711
  Transmission Date: 20120825
  Serious: No
  Sender: FDA-Public Use
  Company Number: US-NOVEN-11US002778

PATIENT
  Sex: Male

DRUGS (2)
  1. DAYTRANA [Suspect]
     Indication: ATTENTION DEFICIT/HYPERACTIVITY DISORDER
     Dosage: 15 MG, QD
     Route: 062
     Dates: end: 20110601
  2. DAYTRANA [Suspect]
     Dosage: 20 MG, UNK
     Route: 062
     Dates: end: 20110601

REACTIONS (10)
  - DRUG PRESCRIBING ERROR [None]
  - REPETITIVE SPEECH [None]
  - CRYING [None]
  - ABDOMINAL PAIN [None]
  - HEADACHE [None]
  - OFF LABEL USE [None]
  - PRODUCT QUALITY ISSUE [None]
  - PRURITUS [None]
  - DISTURBANCE IN SOCIAL BEHAVIOUR [None]
  - SCREAMING [None]
